FAERS Safety Report 5321953-3 (Version None)
Quarter: 2007Q2

REPORT INFORMATION
  Report Type: 
  Country: None (occurrence: None)
  Receive Date: 20070511
  Receipt Date: 20070503
  Transmission Date: 20071010
  Serious: Yes (Hospitalization, Other)
  Sender: FDA-Public Use
  Company Number: PHNU2001DE01120

PATIENT
  Age: 19 Year
  Sex: Male

DRUGS (2)
  1. RITALIN [Suspect]
     Indication: ATTENTION DEFICIT/HYPERACTIVITY DISORDER
     Dosage: 150MG/DAY
     Route: 048
     Dates: end: 20010423
  2. RITALIN [Suspect]
     Dosage: 60 MG/DAY
     Route: 048

REACTIONS (6)
  - FACIAL PALSY [None]
  - GRAND MAL CONVULSION [None]
  - HYPOAESTHESIA [None]
  - OVERDOSE [None]
  - PYREXIA [None]
  - VASCULITIS [None]
